FAERS Safety Report 8233376-8 (Version None)
Quarter: 2012Q1

REPORT INFORMATION
  Report Type: 
  Country: None (occurrence: None)
  Receive Date: 20120323
  Receipt Date: 20120323
  Transmission Date: 20120608
  Serious: No
  Sender: FDA-Public Use
  Company Number: None

PATIENT
  Sex: Female

DRUGS (2)
  1. ^KISS^ BRAND NAIL GLUE [Suspect]
  2. TIMOLOL MALEATE [Suspect]
     Dosage: DROPS

REACTIONS (4)
  - EMOTIONAL DISORDER [None]
  - PAIN [None]
  - MEDICATION ERROR [None]
  - ACCIDENTAL EXPOSURE [None]
